FAERS Safety Report 15642344 (Version 1)
Quarter: 2018Q4

REPORT INFORMATION
  Report Type: Spontaneous
  Country: FR (occurrence: FR)
  Receive Date: 20181121
  Receipt Date: 20181121
  Transmission Date: 20190205
  Serious: Yes (Hospitalization)
  Sender: FDA-Public Use
  Company Number: FR-SUN PHARMACEUTICAL INDUSTRIES LTD-2018RR-191279

PATIENT
  Age: 11 Year
  Sex: Male
  Weight: 43 kg

DRUGS (7)
  1. RIMIFON [Concomitant]
     Active Substance: ISONIAZID
     Indication: EVIDENCE BASED TREATMENT
     Dosage: 450 MILLIGRAM
     Route: 048
     Dates: start: 20181004, end: 20181011
  2. PARACETAMOL [Suspect]
     Active Substance: ACETAMINOPHEN
     Indication: PAIN
     Dosage: UNK
     Route: 048
     Dates: start: 20180926, end: 20181003
  3. DEXAMBUTOL 500 MG, COMPRIME PELLICULE [Concomitant]
     Active Substance: ETHAMBUTOL HYDROCHLORIDE
     Indication: EVIDENCE BASED TREATMENT
     Dosage: 1000 MILLIGRAM
     Route: 048
     Dates: start: 20181004, end: 20181011
  4. PIRILENE 500 MG, COMPRIME [Concomitant]
     Indication: EVIDENCE BASED TREATMENT
     Dosage: 1500 MILLIGRAM
     Route: 048
     Dates: start: 20181004, end: 20181011
  5. PARACETAMOL KABI 10 MG/ML, SOLUTION POUR PERFUSION [Suspect]
     Active Substance: ACETAMINOPHEN
     Indication: PAIN
     Dosage: UNK
     Route: 042
     Dates: start: 20181003, end: 20181012
  6. RIFADINE 300 MG, GELULE [Concomitant]
     Active Substance: RIFAMPIN
     Indication: EVIDENCE BASED TREATMENT
     Dosage: 600 MILLIGRAM
     Route: 048
     Dates: start: 20181004, end: 20181011
  7. GRANUDOXY 100 MG, COMPRIME PELLICULE SECABLE [Concomitant]
     Indication: TULARAEMIA
     Dosage: 200 MILLIGRAM
     Route: 048
     Dates: start: 20180928, end: 20181003

REACTIONS (1)
  - Pyroglutamate increased [Not Recovered/Not Resolved]

NARRATIVE: CASE EVENT DATE: 201810
